FAERS Safety Report 4540938-8 (Version None)
Quarter: 2004Q4

REPORT INFORMATION
  Report Type: 
  Country: None (occurrence: None)
  Receive Date: 20041229
  Receipt Date: 20041214
  Transmission Date: 20050328
  Serious: Yes (Other)
  Sender: FDA-Public Use
  Company Number: SE-GLAXOSMITHKLINE-B0362615A

PATIENT
  Age: 75 Year
  Sex: Female

DRUGS (4)
  1. LAMICTAL [Suspect]
     Dosage: 25MG PER DAY
     Dates: start: 20040903, end: 20040923
  2. REMERON [Concomitant]
  3. SOBRIL [Concomitant]
  4. ABSENOR [Concomitant]

REACTIONS (9)
  - ARTHRALGIA [None]
  - DISTURBANCE IN ATTENTION [None]
  - FATIGUE [None]
  - HYPERHIDROSIS [None]
  - INFLUENZA LIKE ILLNESS [None]
  - LYMPHADENOPATHY [None]
  - NEUTROPENIA [None]
  - TREMOR [None]
  - WHITE BLOOD CELL COUNT DECREASED [None]
